FAERS Safety Report 25573104 (Version 2)
Quarter: 2025Q3

REPORT INFORMATION
  Report Type: Spontaneous
  Country: US (occurrence: US)
  Receive Date: 20250717
  Receipt Date: 20250922
  Transmission Date: 20251021
  Serious: Yes (Hospitalization)
  Sender: SANOFI AVENTIS
  Company Number: US-SA-2025SA201974

PATIENT
  Age: 65 Year
  Sex: Male

DRUGS (34)
  1. REZUROCK [Suspect]
     Active Substance: BELUMOSUDIL
     Indication: Myelodysplastic syndrome
     Dosage: 200 MG, QD
     Route: 048
  2. BACTRIM DS [Concomitant]
     Active Substance: SULFAMETHOXAZOLE\TRIMETHOPRIM
  3. BACTRIM DS [Concomitant]
     Active Substance: SULFAMETHOXAZOLE\TRIMETHOPRIM
  4. BACTRIM DS [Concomitant]
     Active Substance: SULFAMETHOXAZOLE\TRIMETHOPRIM
  5. BUDESONIDE [Concomitant]
     Active Substance: BUDESONIDE
  6. BUDESONIDE [Concomitant]
     Active Substance: BUDESONIDE
  7. BUDESONIDE [Concomitant]
     Active Substance: BUDESONIDE
  8. VITAMINS [Concomitant]
     Active Substance: VITAMINS
  9. DICYCLOMINE [Concomitant]
     Active Substance: DICYCLOMINE HYDROCHLORIDE
  10. FINASTERIDE [Concomitant]
     Active Substance: FINASTERIDE
  11. FINASTERIDE [Concomitant]
     Active Substance: FINASTERIDE
  12. FINASTERIDE [Concomitant]
     Active Substance: FINASTERIDE
  13. HYDROCORTISONE [Concomitant]
     Active Substance: HYDROCORTISONE
  14. JAKAFI [Concomitant]
     Active Substance: RUXOLITINIB
  15. MAGNESIUM [Concomitant]
     Active Substance: MAGNESIUM
  16. MIDODRINE [Concomitant]
     Active Substance: MIDODRINE
  17. NARCAN [Concomitant]
     Active Substance: NALOXONE HYDROCHLORIDE
  18. Osmolite [Concomitant]
  19. POSACONAZOLE [Concomitant]
     Active Substance: POSACONAZOLE
  20. PROCHLORPERAZINE MALEATE [Concomitant]
     Active Substance: PROCHLORPERAZINE MALEATE
  21. REFRESH TEARS [Concomitant]
     Active Substance: CARBOXYMETHYLCELLULOSE SODIUM
  22. URSODIOL [Concomitant]
     Active Substance: URSODIOL
  23. TYLENOL [Concomitant]
     Active Substance: ACETAMINOPHEN
  24. VALACYCLOVIR [Concomitant]
     Active Substance: VALACYCLOVIR HYDROCHLORIDE
  25. TACROLIMUS [Concomitant]
     Active Substance: TACROLIMUS
  26. TAMSULOSIN [Concomitant]
     Active Substance: TAMSULOSIN
  27. TUMS [Concomitant]
     Active Substance: CALCIUM CARBONATE
  28. VITAMIN B12 [Concomitant]
     Active Substance: CYANOCOBALAMIN
  29. SOLIFENACIN [Concomitant]
     Active Substance: SOLIFENACIN
  30. VITAMIN D2 [Concomitant]
     Active Substance: ERGOCALCIFEROL
  31. ZYPREXA [Concomitant]
     Active Substance: OLANZAPINE
  32. SENNA S [Concomitant]
     Active Substance: DOCUSATE SODIUM\SENNOSIDES
  33. SIMETHICONE (DIMETHICONE) [Concomitant]
     Active Substance: DIMETHICONE
  34. Centrum adults [Concomitant]

REACTIONS (3)
  - Hospitalisation [Unknown]
  - Incontinence [Not Recovered/Not Resolved]
  - Product use in unapproved indication [Unknown]
